FAERS Safety Report 22385820 (Version 1)
Quarter: 2023Q2

REPORT INFORMATION
  Report Type: Spontaneous
  Country: US (occurrence: None)
  Receive Date: 20230530
  Receipt Date: 20230530
  Transmission Date: 20230722
  Serious: No
  Sender: FDA-Public Use
  Company Number: None

PATIENT
  Age: 53 Year
  Sex: Female

DRUGS (1)
  1. ORENCIA [Suspect]
     Active Substance: ABATACEPT
     Route: 058

REACTIONS (4)
  - Rash [None]
  - Diabetes mellitus [None]
  - Diastolic hypertension [None]
  - Intracranial pressure increased [None]

NARRATIVE: CASE EVENT DATE: 20230530
